FAERS Safety Report 4278547-0 (Version None)
Quarter: 2004Q1

REPORT INFORMATION
  Report Type: 
  Country: None (occurrence: None)
  Receive Date: 20040122
  Receipt Date: 20040106
  Transmission Date: 20041129
  Serious: No
  Sender: FDA-Public Use
  Company Number: A01200400047

PATIENT
  Age: 57 Year
  Sex: Male

DRUGS (3)
  1. XATRAL XL - (ALFUZOSIN HYDROCHLORIDE) - TABLET PR - 10 MG [Suspect]
     Dosage: 10 MG OD
     Route: 048
     Dates: start: 20030925, end: 20031118
  2. ATENOLOL [Concomitant]
  3. BENDROFLUAZIDE [Concomitant]

REACTIONS (3)
  - ARTHRALGIA [None]
  - METATARSALGIA [None]
  - TENDON DISORDER [None]
